FAERS Safety Report 9249933 (Version 2)
Quarter: 2013Q2

REPORT INFORMATION
  Report Type: Spontaneous
  Country: IT (occurrence: IT)
  Receive Date: 20130423
  Receipt Date: 20130618
  Transmission Date: 20140414
  Serious: Yes (Hospitalization)
  Sender: FDA-Public Use
  Company Number: IT-BRISTOL-MYERS SQUIBB COMPANY-18827576

PATIENT
  Age: 79 Year
  Sex: Male

DRUGS (3)
  1. ERBITUX SOLN FOR INF [Suspect]
     Indication: PHARYNGEAL CANCER
     Route: 042
     Dates: start: 20130206, end: 20130306
  2. DAKTARIN [Concomitant]
  3. ANTRA [Concomitant]

REACTIONS (2)
  - Thrombotic thrombocytopenic purpura [Recovering/Resolving]
  - Confusional state [Recovering/Resolving]
